FAERS Safety Report 13083689 (Version 1)
Quarter: 2017Q1

REPORT INFORMATION
  Report Type: Spontaneous
  Country: GB (occurrence: GB)
  Receive Date: 20170104
  Receipt Date: 20170104
  Transmission Date: 20170428
  Serious: Yes (Hospitalization)
  Sender: FDA-Public Use
  Company Number: GB-AUROBINDO-AUR-APL-2016-15920

PATIENT
  Age: 6 Decade
  Sex: Male

DRUGS (6)
  1. CLOPIDOGREL [Concomitant]
     Active Substance: CLOPIDOGREL BISULFATE
     Indication: PRODUCT USED FOR UNKNOWN INDICATION
     Route: 065
  2. LEVETIRACETAM 500MG [Suspect]
     Active Substance: LEVETIRACETAM
     Indication: POST STROKE SEIZURE
     Dosage: 500 MG, TWO TIMES A DAY
     Route: 048
     Dates: start: 201611
  3. ATORVASTATIN 80 MG [Suspect]
     Active Substance: ATORVASTATIN
     Indication: ARTERIAL STENOSIS
     Dosage: 80 MG, ONCE A DAY, AT NIGHT
     Route: 048
     Dates: start: 201611
  4. MIRTAZAPINE 30MG [Suspect]
     Active Substance: MIRTAZAPINE
     Indication: POST STROKE DEPRESSION
     Dosage: 30 MG, ONCE A DAY, , AT NIGHT.
     Route: 048
     Dates: start: 201611
  5. RAMIPRIL. [Concomitant]
     Active Substance: RAMIPRIL
     Indication: PRODUCT USED FOR UNKNOWN INDICATION
     Route: 065
  6. ASPIRIN                            /00002701/ [Concomitant]
     Active Substance: ASPIRIN
     Indication: PRODUCT USED FOR UNKNOWN INDICATION
     Route: 065

REACTIONS (4)
  - Malaise [Unknown]
  - Nausea [Unknown]
  - Liver function test abnormal [Not Recovered/Not Resolved]
  - Fatigue [Unknown]

NARRATIVE: CASE EVENT DATE: 20161209
